FAERS Safety Report 4753367-9 (Version None)
Quarter: 2005Q3

REPORT INFORMATION
  Report Type: 
  Country: None (occurrence: None)
  Receive Date: 20050823
  Receipt Date: 20050805
  Transmission Date: 20060218
  Serious: Yes (Other)
  Sender: FDA-Public Use
  Company Number: USA0506101490

PATIENT
  Age: 41 Year
  Sex: Male

DRUGS (1)
  1. GEMZAR [Suspect]
     Indication: SQUAMOUS CELL CARCINOMA
     Dosage: 2400 MG/1
     Dates: start: 20050126

REACTIONS (7)
  - BLOOD CREATINE INCREASED [None]
  - BLOOD PRESSURE SYSTOLIC INCREASED [None]
  - HAEMOLYSIS [None]
  - PROTEINURIA [None]
  - RENAL ARTERY STENOSIS [None]
  - VEIN DISORDER [None]
  - VISUAL DISTURBANCE [None]
